FAERS Safety Report 8125544-0 (Version None)
Quarter: 2012Q1

REPORT INFORMATION
  Report Type: 
  Country: None (occurrence: None)
  Receive Date: 20120209
  Receipt Date: 20120209
  Transmission Date: 20120608
  Serious: Yes (Other)
  Sender: FDA-Public Use
  Company Number: NO-PFIZER INC-2012028959

PATIENT
  Age: 85 Year
  Sex: Female

DRUGS (11)
  1. MAREVAN ^NYCOMED^ [Concomitant]
     Dosage: AS PER SCHEDULE
     Route: 048
  2. BUMETANIDE [Concomitant]
     Dosage: 2 MG, 1X/DAY
     Route: 048
  3. DIGITOXIN INJ [Concomitant]
     Dosage: 50 UG 4 DAYS A WEEK
     Route: 048
  4. ATACAND [Concomitant]
     Dosage: 4 MG, 1X/DAY
     Route: 048
  5. SYMBICORT [Concomitant]
     Dosage: 160/45, 2X/DAY
     Route: 055
  6. LYRICA [Suspect]
     Route: 048
     Dates: start: 20111007, end: 20111214
  7. SPIRONOLACTONE [Concomitant]
     Dosage: 12.5 MG, 1X/DAY
     Route: 048
  8. METOPROLOL SUCCINATE [Concomitant]
     Dosage: 100 MG, 1X/DAY
     Route: 048
  9. ALLOPUR [Concomitant]
     Dosage: 100 MG, 2X/DAY
     Route: 048
  10. LYRICA [Suspect]
     Indication: AMPUTATION STUMP PAIN
     Dosage: 300 MG, 2X/DAY
     Route: 048
     Dates: start: 20111007, end: 20111214
  11. PANTOPRAZOLE [Concomitant]
     Dosage: 40 MG, 1X/DAY
     Route: 048

REACTIONS (3)
  - UNRESPONSIVE TO STIMULI [None]
  - MUSCULAR WEAKNESS [None]
  - SEDATION [None]
